FAERS Safety Report 25899937 (Version 1)
Quarter: 2025Q4

REPORT INFORMATION
  Report Type: Spontaneous
  Country: EU (occurrence: EU)
  Receive Date: 20251009
  Receipt Date: 20251009
  Transmission Date: 20260117
  Serious: Yes (Other)
  Sender: AMGEN
  Company Number: EU-AMGEN-ITASP2025197806

PATIENT

DRUGS (2)
  1. CARFILZOMIB [Suspect]
     Active Substance: CARFILZOMIB
     Indication: Plasma cell myeloma
     Dosage: UNK
     Route: 065
  2. DEXAMETHASONE [Suspect]
     Active Substance: DEXAMETHASONE
     Indication: Plasma cell myeloma
     Dosage: UNK
     Route: 065

REACTIONS (12)
  - Acute coronary syndrome [Unknown]
  - Cardiac failure [Unknown]
  - Cardiotoxicity [Unknown]
  - Arrhythmia [Unknown]
  - Hypertensive urgency [Unknown]
  - Hypertensive emergency [Unknown]
  - Acute myocardial infarction [Unknown]
  - Angina pectoris [Unknown]
  - Global longitudinal strain abnormal [Unknown]
  - Ejection fraction abnormal [Unknown]
  - Hypertension [Unknown]
  - Ejection fraction decreased [Unknown]
